FAERS Safety Report 17230306 (Version 13)
Quarter: 2022Q1

REPORT INFORMATION
  Report Type: Spontaneous
  Country: US (occurrence: US)
  Receive Date: 20200103
  Receipt Date: 20220322
  Transmission Date: 20220423
  Serious: Yes (Other)
  Sender: FDA-Public Use
  Company Number: US-PFIZER INC-2020002121

PATIENT
  Age: 67 Year
  Sex: Male

DRUGS (1)
  1. XELJANZ XR [Interacting]
     Active Substance: TOFACITINIB CITRATE
     Indication: Rheumatoid arthritis
     Dosage: 11 MG, 1X/DAY
     Route: 048
     Dates: start: 201807

REACTIONS (14)
  - Thrombosis [Unknown]
  - Atrial fibrillation [Unknown]
  - Neoplasm malignant [Unknown]
  - Renal disorder [Unknown]
  - Spinal operation [Unknown]
  - Gait inability [Not Recovered/Not Resolved]
  - Drug interaction [Unknown]
  - Back pain [Unknown]
  - Somnolence [Unknown]
  - Malaise [Unknown]
  - Gout [Not Recovered/Not Resolved]
  - General physical health deterioration [Unknown]
  - Product storage error [Unknown]
  - Poor quality product administered [Unknown]

NARRATIVE: CASE EVENT DATE: 20180101
